FAERS Safety Report 18277559 (Version 4)
Quarter: 2021Q2

REPORT INFORMATION
  Report Type: Spontaneous
  Country: US (occurrence: US)
  Receive Date: 20200917
  Receipt Date: 20210404
  Transmission Date: 20210717
  Serious: No
  Sender: FDA-Public Use
  Company Number: US-SA-2020SA252139

PATIENT
  Age: 50 Year
  Sex: Female

DRUGS (7)
  1. ZOLPIDEM [Concomitant]
     Active Substance: ZOLPIDEM TARTRATE
     Dosage: UNK
  2. DUPIXENT [Suspect]
     Active Substance: DUPILUMAB
     Indication: DERMATITIS ALLERGIC
     Dosage: 300 MG, QOW
     Route: 058
     Dates: start: 20190318
  3. ATORVASTATIN [Concomitant]
     Active Substance: ATORVASTATIN
     Dosage: UNK
  4. VENLAFAXINE HCL [Concomitant]
     Active Substance: VENLAFAXINE HYDROCHLORIDE
     Dosage: UNK
  5. AMLODIPINE BESYLATE. [Concomitant]
     Active Substance: AMLODIPINE BESYLATE
     Dosage: UNK
  6. VITAMINS NOS [Concomitant]
     Active Substance: VITAMINS
     Dosage: UNK
  7. HYDROXYZINE HCL [Concomitant]
     Active Substance: HYDROXYZINE HYDROCHLORIDE
     Dosage: UNK

REACTIONS (5)
  - Skin swelling [Unknown]
  - SARS-CoV-2 test positive [Unknown]
  - Product dose omission issue [Unknown]
  - Pruritus [Unknown]
  - COVID-19 [Unknown]

NARRATIVE: CASE EVENT DATE: 2020
